FAERS Safety Report 15811235 (Version 1)
Quarter: 2019Q1

REPORT INFORMATION
  Report Type: Spontaneous
  Country: IN (occurrence: IN)
  Receive Date: 20190111
  Receipt Date: 20190111
  Transmission Date: 20190417
  Serious: Yes (Other)
  Sender: FDA-Public Use
  Company Number: IN-ROCHE-2240370

PATIENT
  Sex: Male
  Weight: 63 kg

DRUGS (1)
  1. AVASTIN [Suspect]
     Active Substance: BEVACIZUMAB
     Indication: PRODUCT USED FOR UNKNOWN INDICATION
     Route: 050
     Dates: start: 20110604

REACTIONS (4)
  - Off label use [Unknown]
  - Atrophy of globe [Unknown]
  - Blindness [Unknown]
  - Endophthalmitis [Unknown]
